FAERS Safety Report 7786055-5 (Version None)
Quarter: 2011Q3

REPORT INFORMATION
  Report Type: 
  Country: None (occurrence: None)
  Receive Date: 20110929
  Receipt Date: 20110917
  Transmission Date: 20111222
  Serious: Yes (Other)
  Sender: FDA-Public Use
  Company Number: US-ELI_LILLY_AND_COMPANY-US201108003158

PATIENT
  Sex: Female
  Weight: 70 kg

DRUGS (5)
  1. MULTI-VITAMIN [Concomitant]
  2. TRAMADOL [Concomitant]
     Dosage: 50 MG/KG, UNKNOWN
  3. OSCAL D [Concomitant]
     Dosage: 20 MG, OTHER
  4. SOTALOL HCL [Concomitant]
     Dosage: 80 MG, BID
  5. FORTEO [Suspect]
     Indication: OSTEOPOROSIS
     Dosage: UNK, QD

REACTIONS (1)
  - WEIGHT DECREASED [None]
